FAERS Safety Report 12562512 (Version 1)
Quarter: 2016Q3

REPORT INFORMATION
  Report Type: Spontaneous
  Country: PL (occurrence: PL)
  Receive Date: 20160715
  Receipt Date: 20160715
  Transmission Date: 20161109
  Serious: Yes (Other)
  Sender: FDA-Public Use
  Company Number: PL-TEVA-674948ACC

PATIENT
  Age: 43 Year
  Sex: Male
  Weight: 83 kg

DRUGS (1)
  1. CICLOSPORIN [Suspect]
     Active Substance: CYCLOSPORINE
     Indication: PSORIASIS
     Dosage: 250 MILLIGRAM DAILY; DOSAGE: 3MG/KG B.M. /D
     Route: 048
     Dates: start: 20160121, end: 20160223

REACTIONS (5)
  - Coronary artery disease [Recovering/Resolving]
  - Headache [Recovering/Resolving]
  - Flank pain [Recovering/Resolving]
  - Nervousness [Recovering/Resolving]
  - Visual acuity reduced [Recovering/Resolving]

NARRATIVE: CASE EVENT DATE: 20160208
